FAERS Safety Report 18354012 (Version 2)
Quarter: 2022Q4

REPORT INFORMATION
  Report Type: Report from Study
  Country: US (occurrence: US)
  Receive Date: 20201006
  Receipt Date: 20221206
  Transmission Date: 20230113
  Serious: Yes (Hospitalization, Other)
  Sender: FDA-Public Use
  Company Number: US-BRISTOL-MYERS SQUIBB COMPANY-BMS-2020-074406

PATIENT
  Age: 45 Year
  Sex: Male
  Weight: 113.9 kg

DRUGS (16)
  1. IPILIMUMAB [Suspect]
     Active Substance: IPILIMUMAB
     Indication: Testicular cancer metastatic
     Dosage: ON DAY 1 (CYCLE 1-4, 21 DAYS)
     Route: 042
     Dates: start: 20200526
  2. NIVOLUMAB [Suspect]
     Active Substance: NIVOLUMAB
     Indication: Testicular cancer metastatic
     Dosage: ON DAY 1 (CYCLE 5, 28 DAYS )
     Route: 042
     Dates: start: 20200818
  3. NIVOLUMAB [Suspect]
     Active Substance: NIVOLUMAB
     Dosage: ON DAY 1 (CYCLE 1-4, 21 DAYS )
     Route: 042
     Dates: start: 20200526
  4. CABOZANTINIB [Suspect]
     Active Substance: CABOZANTINIB
     Indication: Testicular cancer metastatic
     Route: 048
     Dates: start: 20201013
  5. CABOZANTINIB [Suspect]
     Active Substance: CABOZANTINIB
     Route: 048
     Dates: start: 20200526, end: 20200824
  6. APIXABAN [Concomitant]
     Active Substance: APIXABAN
     Indication: Product used for unknown indication
     Dosage: 5 MILLIGRAM, BID
     Route: 048
  7. AMITRIPTYLINE [Concomitant]
     Active Substance: AMITRIPTYLINE
     Indication: Product used for unknown indication
     Dosage: 50MG, ONCE A DAY (AT BEDTIME)
     Route: 048
  8. DULOXETINE [Concomitant]
     Active Substance: DULOXETINE
     Indication: Product used for unknown indication
     Route: 065
  9. FLOMAX [Concomitant]
     Active Substance: TAMSULOSIN HYDROCHLORIDE
     Indication: Product used for unknown indication
     Dosage: 0.4 MILLIGRAM, QD
     Route: 048
  10. GABAPENTIN [Concomitant]
     Active Substance: GABAPENTIN
     Indication: Product used for unknown indication
     Route: 065
  11. HOMATROPINE METHYLBROMIDE\HYDROCODONE BITARTRATE [Concomitant]
     Active Substance: HOMATROPINE METHYLBROMIDE\HYDROCODONE BITARTRATE
     Indication: Cough
     Dosage: 7.5 MILLIGRAM, Q6H
     Route: 048
  12. OXYCODONE [Concomitant]
     Active Substance: OXYCODONE
     Indication: Product used for unknown indication
     Dosage: 2 TAB 1 TAB 1 TAB, Q12H
     Route: 048
  13. MULTIVITAMIN andamp; MINERAL [Concomitant]
     Indication: Product used for unknown indication
     Dosage: 1 TAB 1 TAB 1 TAB, QD
     Route: 048
  14. CYMBALTA [Concomitant]
     Active Substance: DULOXETINE HYDROCHLORIDE
     Indication: Product used for unknown indication
     Dosage: 1 TAB 1 TAB QD
     Route: 048
  15. PROTONIX [Concomitant]
     Active Substance: PANTOPRAZOLE SODIUM
     Indication: Product used for unknown indication
     Dosage: 40 MILLIGRAM, QD
     Route: 048
  16. TESSALON [Concomitant]
     Active Substance: BENZONATATE
     Indication: Product used for unknown indication
     Dosage: 4 TAB 1 TAB 1 TAB, Q6H
     Route: 048

REACTIONS (7)
  - Myocarditis [Recovering/Resolving]
  - Pneumonitis [Unknown]
  - Acute respiratory failure [Unknown]
  - Palmar-plantar erythrodysaesthesia syndrome [Unknown]
  - Pulmonary embolism [Unknown]
  - Dyspnoea [Recovered/Resolved]
  - Atypical pneumonia [Unknown]

NARRATIVE: CASE EVENT DATE: 20200801
